FAERS Safety Report 21143699 (Version 1)
Quarter: 2022Q3

REPORT INFORMATION
  Report Type: Spontaneous
  Country: US (occurrence: US)
  Receive Date: 20220728
  Receipt Date: 20220728
  Transmission Date: 20221027
  Serious: No
  Sender: FDA-Public Use
  Company Number: US-GLAXOSMITHKLINE-USCH2022AMR026148

PATIENT
  Age: 64 Year
  Sex: Female

DRUGS (4)
  1. EMERGEN-C [Suspect]
     Active Substance: VITAMINS
     Indication: Product used for unknown indication
     Dosage: UNK
  2. FLONASE [Suspect]
     Active Substance: FLUTICASONE PROPIONATE
     Indication: Product used for unknown indication
     Dosage: UNK
  3. PAXLOVID [Suspect]
     Active Substance: NIRMATRELVIR\RITONAVIR
     Indication: Product used for unknown indication
     Dosage: UNK
  4. ACETAMINOPHEN\GUAIFENESIN\PHENYLEPHRINE [Suspect]
     Active Substance: ACETAMINOPHEN\GUAIFENESIN\PHENYLEPHRINE
     Indication: Product used for unknown indication
     Dosage: UNK

REACTIONS (12)
  - Ageusia [Recovering/Resolving]
  - Anosmia [Recovering/Resolving]
  - Diarrhoea [Recovering/Resolving]
  - Abdominal pain upper [Recovering/Resolving]
  - Dry mouth [Recovering/Resolving]
  - Cough [Recovering/Resolving]
  - Fatigue [Unknown]
  - Headache [Not Recovered/Not Resolved]
  - Night sweats [Unknown]
  - Faeces discoloured [Unknown]
  - Asthenia [Not Recovered/Not Resolved]
  - Dizziness [Not Recovered/Not Resolved]
